FAERS Safety Report 14276300 (Version 2)
Quarter: 2018Q1

REPORT INFORMATION
  Report Type: Spontaneous
  Country: JP (occurrence: JP)
  Receive Date: 20171212
  Receipt Date: 20180122
  Transmission Date: 20180508
  Serious: Yes (Other)
  Sender: FDA-Public Use
  Company Number: JP-LANNETT COMPANY, INC.-JP-2017LAN001249

PATIENT
  Sex: Female

DRUGS (5)
  1. ABILIFY [Suspect]
     Active Substance: ARIPIPRAZOLE
     Indication: SCHIZOPHRENIA
     Dosage: 6 MG, UNK
     Route: 048
     Dates: start: 20100108, end: 20100121
  2. ARIPIPRAZOLE. [Suspect]
     Active Substance: ARIPIPRAZOLE
     Dosage: 9 MG, UNK
     Route: 048
     Dates: start: 20101007, end: 20101020
  3. ARIPIPRAZOLE. [Suspect]
     Active Substance: ARIPIPRAZOLE
     Dosage: 3 MG, UNK
     Route: 048
     Dates: start: 20101111
  4. ARIPIPRAZOLE. [Suspect]
     Active Substance: ARIPIPRAZOLE
     Indication: SCHIZOPHRENIA
     Dosage: 12 MG, UNK
     Route: 048
     Dates: start: 20100122, end: 20101006
  5. ARIPIPRAZOLE. [Suspect]
     Active Substance: ARIPIPRAZOLE
     Dosage: 6 MG, UNK
     Route: 048
     Dates: start: 20101021, end: 20101110

REACTIONS (1)
  - Abortion [Recovered/Resolved]

NARRATIVE: CASE EVENT DATE: 201011
